FAERS Safety Report 24266048 (Version 1)
Quarter: 2024Q3

REPORT INFORMATION
  Report Type: Spontaneous
  Country: AU (occurrence: AU)
  Receive Date: 20240830
  Receipt Date: 20240830
  Transmission Date: 20241017
  Serious: Yes (Other)
  Sender: Harrow Health
  Company Number: AU-IMP-2024000655

PATIENT
  Sex: Male

DRUGS (1)
  1. MAXIDEX [Suspect]
     Active Substance: DEXAMETHASONE
     Indication: Eye inflammation
     Dosage: 16 DROPS A DAY/ 4 DROPS, 4-5 TIMES A DAY WITHIN 8 MINUTES
     Route: 047
     Dates: start: 2023

REACTIONS (5)
  - Eye haemorrhage [Unknown]
  - Glaucoma [Unknown]
  - Intraocular pressure increased [Unknown]
  - Product storage error [Unknown]
  - Product administered at inappropriate site [Unknown]

NARRATIVE: CASE EVENT DATE: 20240101
